FAERS Safety Report 4881538-X (Version None)
Quarter: 2006Q1

REPORT INFORMATION
  Report Type: 
  Country: None (occurrence: None)
  Receive Date: 20060116
  Receipt Date: 20060105
  Transmission Date: 20060701
  Serious: Yes (Hospitalization)
  Sender: FDA-Public Use
  Company Number: FR-GLAXOSMITHKLINE-B0405754A

PATIENT
  Sex: Female

DRUGS (9)
  1. RETROVIR [Suspect]
     Indication: ANTIVIRAL PROPHYLAXIS
     Route: 048
     Dates: start: 19990131, end: 19990312
  2. NEVIRAPINE [Suspect]
     Indication: ANTIVIRAL PROPHYLAXIS
     Route: 048
     Dates: start: 19990202, end: 19990202
  3. RETROVIR [Concomitant]
  4. RETROVIR [Concomitant]
     Dates: start: 19990130, end: 19990130
  5. ATEPADENE [Concomitant]
  6. IRON [Concomitant]
  7. VITAMIN [Concomitant]
  8. ALDOMET [Concomitant]
  9. PYOSTACINE [Concomitant]

REACTIONS (5)
  - ALANINE AMINOTRANSFERASE INCREASED [None]
  - BLOOD LACTIC ACID INCREASED [None]
  - DRUG EXPOSURE DURING PREGNANCY [None]
  - MACROCYTOSIS [None]
  - NEUTROPENIA [None]
